FAERS Safety Report 5545931-4 (Version None)
Quarter: 2007Q4

REPORT INFORMATION
  Report Type: 
  Country: None (occurrence: None)
  Receive Date: 20071211
  Receipt Date: 20071108
  Transmission Date: 20080405
  Serious: No
  Sender: FDA-Public Use
  Company Number: US-ASTRAZENECA-2007UW26052

PATIENT
  Age: 73 Year
  Sex: Female
  Weight: 28.6 kg

DRUGS (7)
  1. SYMBICORT [Suspect]
     Indication: ASTHMA
     Dosage: 80/4.5 ONE PUFF BID
     Route: 055
     Dates: start: 20070701
  2. SYMBICORT [Suspect]
     Indication: CHRONIC OBSTRUCTIVE PULMONARY DISEASE
     Dosage: 80/4.5 ONE PUFF BID
     Route: 055
     Dates: start: 20070701
  3. SPIRIVA [Concomitant]
  4. ALBUTEROL [Concomitant]
     Dosage: 1-2 PUFFS
  5. ACCUPRIL [Concomitant]
  6. IMDUR [Concomitant]
  7. OCUPRESS [Concomitant]

REACTIONS (2)
  - DRUG INEFFECTIVE [None]
  - DYSPNOEA [None]
